FAERS Safety Report 9556720 (Version 1)
Quarter: 2013Q3

REPORT INFORMATION
  Report Type: Spontaneous
  Country: US (occurrence: None)
  Receive Date: 20130924
  Receipt Date: 20130924
  Transmission Date: 20140515
  Serious: Yes (Death, Other)
  Sender: FDA-Public Use
  Company Number: 2013P1019360

PATIENT
  Age: 55 Year
  Sex: Female

DRUGS (1)
  1. HYDROXYCHLOROQUINE [Suspect]

REACTIONS (8)
  - Renal failure [None]
  - Dialysis [None]
  - Right ventricular hypertrophy [None]
  - Ejection fraction decreased [None]
  - Dilatation ventricular [None]
  - Enterococcus test positive [None]
  - Cardiomyopathy [None]
  - Myopathy [None]
